FAERS Safety Report 8849486 (Version 1)
Quarter: 2012Q4

REPORT INFORMATION
  Report Type: 
  Country: US (occurrence: US)
  Receive Date: 20121019
  Receipt Date: 20121019
  Transmission Date: 20130627
  Serious: Yes (Other)
  Sender: FDA-Public Use
  Company Number: PHHY2012US090323

PATIENT
  Age: 62 Year
  Sex: Male

DRUGS (4)
  1. BUPRENORPHINE [Suspect]
     Dosage: 4 mg, daily
  2. BUPRENORPHINE [Suspect]
     Dosage: 8 mg, daily
  3. BUPRENORPHINE [Suspect]
     Dosage: 32 mg, daily
  4. METHADONE [Suspect]
     Dosage: 165 mg, daily

REACTIONS (12)
  - Myalgia [Recovered/Resolved]
  - Blood pressure increased [Recovered/Resolved]
  - Flushing [Recovered/Resolved]
  - Chills [Recovered/Resolved]
  - Lacrimation increased [Recovered/Resolved]
  - Anxiety [Recovered/Resolved]
  - Nausea [Recovered/Resolved]
  - Vomiting [Recovered/Resolved]
  - Diarrhoea [Recovered/Resolved]
  - Discomfort [Recovered/Resolved]
  - Withdrawal syndrome [Recovered/Resolved]
  - Wrong drug administered [Unknown]
